FAERS Safety Report 8490699-5 (Version None)
Quarter: 2012Q3

REPORT INFORMATION
  Report Type: 
  Country: None (occurrence: None)
  Receive Date: 20120706
  Receipt Date: 20120623
  Transmission Date: 20120928
  Serious: Yes (Death, Other)
  Sender: FDA-Public Use
  Company Number: IT-PAR PHARMACEUTICAL, INC-2012SCPR004473

PATIENT

DRUGS (2)
  1. TESTOSTERONE [Suspect]
     Indication: PRODUCT USED FOR UNKNOWN INDICATION
     Dosage: UNK, UNKNOWN
     Route: 065
  2. ANABOLIC STEROIDS [Suspect]
     Indication: PRODUCT USED FOR UNKNOWN INDICATION
     Dosage: UNK, UNKNOWN
     Route: 065

REACTIONS (7)
  - VENTRICULAR FIBRILLATION [None]
  - SUDDEN CARDIAC DEATH [None]
  - EOSINOPHILIC MYOCARDITIS [None]
  - MITRAL VALVE DISEASE [None]
  - CARDIAC ARREST [None]
  - AORTIC ARTERIOSCLEROSIS [None]
  - DRUG ABUSE [None]
